FAERS Safety Report 5139376-9 (Version None)
Quarter: 2006Q4

REPORT INFORMATION
  Report Type: 
  Country: None (occurrence: None)
  Receive Date: 20061030
  Receipt Date: 20061023
  Transmission Date: 20070319
  Serious: Yes (Life-Threatening)
  Sender: FDA-Public Use
  Company Number: AU-BRISTOL-MYERS SQUIBB COMPANY-13556725

PATIENT
  Age: 88 Year
  Sex: Female

DRUGS (5)
  1. HYDREA [Suspect]
     Indication: EMBOLISM VENOUS
     Route: 048
     Dates: start: 20050509, end: 20050523
  2. OSTELIN [Concomitant]
  3. CALTRATE [Concomitant]
  4. GENTAMICIN [Concomitant]
  5. TIMENTIN [Concomitant]

REACTIONS (2)
  - FEBRILE NEUTROPENIA [None]
  - THROMBOCYTOPENIA [None]
